APPROVED DRUG PRODUCT: MONISTAT 7
Active Ingredient: MICONAZOLE NITRATE
Strength: 2%
Dosage Form/Route: CREAM;VAGINAL
Application: N017450 | Product #002
Applicant: MEDTECH PRODUCTS INC
Approved: Feb 15, 1991 | RLD: Yes | RS: Yes | Type: OTC